FAERS Safety Report 11871866 (Version 3)
Quarter: 2016Q1

REPORT INFORMATION
  Report Type: Spontaneous
  Country: JP (occurrence: JP)
  Receive Date: 20151228
  Receipt Date: 20160126
  Transmission Date: 20160526
  Serious: Yes (Other)
  Sender: FDA-Public Use
  Company Number: JP-GLAXOSMITHKLINE-JP2015JPN179604

PATIENT
  Age: 13 Year
  Sex: Male

DRUGS (7)
  1. EXCEGRAN [Concomitant]
     Active Substance: ZONISAMIDE
     Indication: PARTIAL SEIZURES
     Dosage: UNK
  2. EXCEGRAN [Concomitant]
     Active Substance: ZONISAMIDE
     Indication: TONIC CONVULSION
  3. LAMICTAL [Suspect]
     Active Substance: LAMOTRIGINE
     Indication: PARTIAL SEIZURES
     Dosage: UNK
     Route: 048
     Dates: start: 200909
  4. LAMICTAL [Suspect]
     Active Substance: LAMOTRIGINE
     Indication: TONIC CONVULSION
  5. DEPAKENE [Suspect]
     Active Substance: VALPROIC ACID
     Indication: PARTIAL SEIZURES
     Dosage: UNK
     Route: 048
  6. TOPIRAMATE. [Concomitant]
     Active Substance: TOPIRAMATE
     Dosage: UNK
  7. DEPAKENE [Suspect]
     Active Substance: VALPROIC ACID
     Indication: TONIC CONVULSION

REACTIONS (10)
  - Pyrexia [Unknown]
  - Hepatic function abnormal [Unknown]
  - Muscle twitching [Unknown]
  - Status epilepticus [Unknown]
  - Dehydration [Unknown]
  - Rhabdomyolysis [Recovered/Resolved]
  - Blood creatine phosphokinase increased [Unknown]
  - Upper respiratory tract infection [Unknown]
  - Tonic convulsion [Unknown]
  - Renal disorder [Recovering/Resolving]
